FAERS Safety Report 9856562 (Version 2)
Quarter: 2014Q1

REPORT INFORMATION
  Report Type: Spontaneous
  Country: US (occurrence: US)
  Receive Date: 20140130
  Receipt Date: 20140130
  Transmission Date: 20141002
  Serious: Yes (Other)
  Sender: FDA-Public Use
  Company Number: US-GILEAD-2012-0066683

PATIENT
  Sex: Male

DRUGS (4)
  1. COMPLERA [Suspect]
     Indication: HIV INFECTION
     Dosage: UNK
     Dates: start: 20120726
  2. TRUVADA [Suspect]
     Indication: HIV INFECTION
  3. DARUNAVIR [Suspect]
     Indication: HIV INFECTION
  4. RITONAVIR [Suspect]
     Indication: HIV INFECTION

REACTIONS (5)
  - Genotype drug resistance test positive [Unknown]
  - Viral load increased [Unknown]
  - Hunger [Unknown]
  - Hyperphagia [Unknown]
  - Weight increased [Unknown]
